FAERS Safety Report 5521679-7 (Version None)
Quarter: 2007Q4

REPORT INFORMATION
  Report Type: 
  Country: None (occurrence: None)
  Receive Date: 20071115
  Receipt Date: 20071106
  Transmission Date: 20080405
  Serious: Yes (Other)
  Sender: FDA-Public Use
  Company Number: 2007-03715

PATIENT
  Sex: 0

DRUGS (2)
  1. VELCADE [Suspect]
     Indication: MULTIPLE MYELOMA
     Dosage: 1.30  MG/M2, INTRAVENOUS
     Route: 042
  2. DEXAMETHASONE TAB [Suspect]
     Indication: MULTIPLE MYELOMA
     Dosage: 40 MG, MG/M2

REACTIONS (4)
  - HEPATOTOXICITY [None]
  - HYPERGLYCAEMIA [None]
  - NEUTROPENIA [None]
  - THROMBOCYTOPENIA [None]
